FAERS Safety Report 6441815-8 (Version None)
Quarter: 2009Q4

REPORT INFORMATION
  Report Type: 
  Country: None (occurrence: None)
  Receive Date: 20091113
  Receipt Date: 20091113
  Transmission Date: 20100525
  Serious: No
  Sender: FDA-Public Use
  Company Number: None

PATIENT
  Sex: Female
  Weight: 118.3888 kg

DRUGS (1)
  1. LAMOTRIGINE [Suspect]
     Indication: BIPOLAR DISORDER
     Dosage: 200MG AT BEDTIME PO
     Route: 048

REACTIONS (3)
  - BIPOLAR DISORDER [None]
  - MOOD SWINGS [None]
  - PRODUCT SUBSTITUTION ISSUE [None]
